FAERS Safety Report 5894293-1 (Version None)
Quarter: 2008Q3

REPORT INFORMATION
  Report Type: 
  Country: None (occurrence: None)
  Receive Date: 20080923
  Receipt Date: 20080415
  Transmission Date: 20090109
  Serious: No
  Sender: FDA-Public Use
  Company Number: US-ASTRAZENECA-2008UW07674

PATIENT
  Age: 43 Year
  Sex: Female
  Weight: 87.1 kg

DRUGS (3)
  1. SEROQUEL [Suspect]
     Indication: SLEEP DISORDER
     Route: 048
  2. EFFEXOR [Concomitant]
  3. MOTRIN [Concomitant]

REACTIONS (2)
  - FEELING ABNORMAL [None]
  - IRRITABILITY [None]
